FAERS Safety Report 15011444 (Version 1)
Quarter: 2018Q2

REPORT INFORMATION
  Report Type: Spontaneous
  Country: US (occurrence: US)
  Receive Date: 20180614
  Receipt Date: 20180614
  Transmission Date: 20180711
  Serious: No
  Sender: FDA-Public Use
  Company Number: US-ASTRAZENECA-2018SE29965

PATIENT
  Age: 601 Day
  Sex: Male
  Weight: 8.7 kg

DRUGS (1)
  1. SYNAGIS [Suspect]
     Active Substance: PALIVIZUMAB
     Route: 030
     Dates: start: 20171110, end: 201712

REACTIONS (1)
  - Respiratory syncytial virus infection [Unknown]

NARRATIVE: CASE EVENT DATE: 20171127
